FAERS Safety Report 7743106-1 (Version None)
Quarter: 2011Q3

REPORT INFORMATION
  Report Type: 
  Country: None (occurrence: None)
  Receive Date: 20110908
  Receipt Date: 20110908
  Transmission Date: 20111222
  Serious: No
  Sender: FDA-Public Use
  Company Number: None

PATIENT
  Sex: Female
  Weight: 58.9676 kg

DRUGS (2)
  1. SUCRALFATE [Suspect]
     Indication: INFLAMMATION
     Dosage: 1 TAB 3X DAILY MOUTH
     Route: 048
     Dates: start: 20110812, end: 20110814
  2. CARAFATE [Suspect]
     Dosage: 2TSP 2X DAILY MOUTH
     Route: 048

REACTIONS (1)
  - PRURITUS [None]
